FAERS Safety Report 6896021-X (Version None)
Quarter: 2010Q3

REPORT INFORMATION
  Report Type: 
  Country: None (occurrence: None)
  Receive Date: 20100802
  Receipt Date: 20100721
  Transmission Date: 20110219
  Serious: Yes (Other)
  Sender: FDA-Public Use
  Company Number: A0784460A

PATIENT
  Age: 54 Year
  Sex: Female
  Weight: 61.8 kg

DRUGS (3)
  1. AVANDIA [Suspect]
     Route: 048
     Dates: start: 20010101, end: 20070301
  2. AVANDAMET [Suspect]
     Route: 048
     Dates: start: 20050201, end: 20050801
  3. ACTOS [Concomitant]
     Dates: start: 20010109, end: 20060201

REACTIONS (3)
  - DYSPNOEA [None]
  - FATIGUE [None]
  - MYOCARDIAL INFARCTION [None]
